FAERS Safety Report 6030117-X (Version None)
Quarter: 2009Q1

REPORT INFORMATION
  Report Type: 
  Country: None (occurrence: None)
  Receive Date: 20090106
  Receipt Date: 20090106
  Transmission Date: 20090719
  Serious: Yes (Hospitalization)
  Sender: FDA-Public Use
  Company Number: None

PATIENT
  Age: 80 Year
  Sex: Male

DRUGS (2)
  1. CLONIDINE [Suspect]
     Indication: HYPERTENSION
     Dosage: 3 MG/24 HR Q WEEK TOP
     Route: 061
     Dates: start: 20080714, end: 20081219
  2. BUMETANIDE [Suspect]
     Indication: HYPERTENSION
     Dosage: 0.5 MG EVERY DAY PO
     Route: 048
     Dates: end: 20081219

REACTIONS (4)
  - DEHYDRATION [None]
  - HEART RATE DECREASED [None]
  - HYPOTENSION [None]
  - SYNCOPE [None]
